FAERS Safety Report 8464139-6 (Version None)
Quarter: 2012Q2

REPORT INFORMATION
  Report Type: 
  Country: None (occurrence: None)
  Receive Date: 20120625
  Receipt Date: 20120620
  Transmission Date: 20120825
  Serious: Yes (Hospitalization, Disabling, Other)
  Sender: FDA-Public Use
  Company Number: CA-TEVA-342843USA

PATIENT
  Sex: Male
  Weight: 73.548 kg

DRUGS (11)
  1. MIDODRINE HYDROCHLORIDE [Concomitant]
     Dosage: 5 MILLIGRAM;
     Dates: start: 20120401
  2. ATORVASTATIN CALCIUM [Concomitant]
     Dosage: 20 MILLIGRAM;
  3. ASPIRIN [Concomitant]
     Dosage: 81 MILLIGRAM;
  4. AMIODARONE HYDROCHLORIDE [Concomitant]
     Dosage: 200 MILLIGRAM;
     Dates: start: 20110501
  5. ETIDROCAL [Concomitant]
     Dosage: 500 MILLIGRAM;
  6. TAMSULOSIN HCL [Suspect]
     Indication: PROSTATOMEGALY
     Dosage: .4 MILLIGRAM;
     Route: 048
     Dates: start: 20110501
  7. PREDNISONE [Concomitant]
     Dosage: 2 MILLIGRAM;
     Dates: start: 20120501
  8. PREDNISONE [Concomitant]
     Dosage: 3 MILLIGRAM;
     Dates: start: 20120201, end: 20120501
  9. TINDRA-CORTICOSTERONE [Concomitant]
     Dosage: .1 MILLIGRAM;
  10. FLUDROCORTISONE ACETATE [Suspect]
  11. CYANOCOBALAMIN [Concomitant]
     Dosage: 200 MILLIGRAM;

REACTIONS (10)
  - LOSS OF CONSCIOUSNESS [None]
  - VISION BLURRED [None]
  - FATIGUE [None]
  - MULTIPLE SYSTEM ATROPHY [None]
  - SYNCOPE [None]
  - MUSCULOSKELETAL PAIN [None]
  - FEELING ABNORMAL [None]
  - ASTHENIA [None]
  - BACK PAIN [None]
  - DIZZINESS [None]
